FAERS Safety Report 10662075 (Version 1)
Quarter: 2014Q4

REPORT INFORMATION
  Report Type: Spontaneous
  Country: DE (occurrence: DE)
  Receive Date: 20141218
  Receipt Date: 20141218
  Transmission Date: 20150529
  Serious: Yes (Hospitalization, Other)
  Sender: FDA-Public Use
  Company Number: DE-ROXANE LABORATORIES, INC.-2014-RO-01890RO

PATIENT
  Age: 39 Year
  Sex: Female

DRUGS (7)
  1. MIDAZOLAM [Suspect]
     Active Substance: MIDAZOLAM\MIDAZOLAM HYDROCHLORIDE
     Indication: INDUCTION OF ANAESTHESIA
     Route: 065
  2. CLARITHROMYCIN. [Suspect]
     Active Substance: CLARITHROMYCIN
     Indication: EVIDENCE BASED TREATMENT
     Route: 065
  3. RIFAMPICIN [Suspect]
     Active Substance: RIFAMPIN
     Indication: EVIDENCE BASED TREATMENT
     Route: 065
  4. PROPOFOL. [Suspect]
     Active Substance: PROPOFOL
     Indication: GENERAL ANAESTHESIA
     Route: 065
  5. PIPERACILLIN [Suspect]
     Active Substance: PIPERACILLIN
     Indication: EVIDENCE BASED TREATMENT
     Route: 065
  6. MOXIFLOXACIN [Suspect]
     Active Substance: MOXIFLOXACIN
     Indication: EVIDENCE BASED TREATMENT
     Route: 065
  7. TAZOBACTAM [Suspect]
     Active Substance: TAZOBACTAM
     Indication: EVIDENCE BASED TREATMENT
     Route: 065

REACTIONS (6)
  - Ileus paralytic [Unknown]
  - Pneumothorax spontaneous [Recovered/Resolved]
  - Peritonitis bacterial [Recovered/Resolved]
  - Eosinophilic pneumonia acute [Recovered/Resolved]
  - Respiratory failure [Recovered/Resolved]
  - Rectal perforation [Recovered/Resolved]
